FAERS Safety Report 13524878 (Version 1)
Quarter: 2017Q2

REPORT INFORMATION
  Report Type: Spontaneous
  Country: US (occurrence: US)
  Receive Date: 20170508
  Receipt Date: 20170508
  Transmission Date: 20170830
  Serious: No
  Sender: FDA-Public Use
  Company Number: US-ROCHE-1126311

PATIENT
  Sex: Female

DRUGS (4)
  1. LEUCOVORIN. [Concomitant]
     Active Substance: LEUCOVORIN
  2. CAMPTOTHECIN [Concomitant]
     Active Substance: CAMPTOTHECIN
  3. AVASTIN [Suspect]
     Active Substance: BEVACIZUMAB
     Indication: COLON CANCER
     Route: 065
  4. 5-FU [Concomitant]
     Active Substance: FLUOROURACIL

REACTIONS (1)
  - Disease progression [Unknown]
